FAERS Safety Report 11539826 (Version 1)
Quarter: 2015Q3

REPORT INFORMATION
  Report Type: Spontaneous
  Country: US (occurrence: None)
  Receive Date: 20150922
  Receipt Date: 20150922
  Transmission Date: 20151125
  Serious: Yes (Other)
  Sender: FDA-Public Use
  Company Number: None

PATIENT
  Age: 59 Year
  Sex: Female
  Weight: 71.22 kg

DRUGS (20)
  1. NORTHERA [Suspect]
     Active Substance: DROXIDOPA
     Indication: SMALL FIBRE NEUROPATHY
     Dosage: 1 PILL 3XDAY THEN 2 PILLS 3XDAY THEN 3 PILLS 3XDAY
     Route: 048
     Dates: start: 20150822, end: 20150822
  2. L-LYSINE [Concomitant]
     Active Substance: LYSINE
  3. SENNA [Concomitant]
     Active Substance: SENNA LEAF\SENNOSIDES\SENNOSIDES A AND B
  4. MELATONIN [Concomitant]
     Active Substance: MELATONIN
  5. NORCO [Concomitant]
     Active Substance: ACETAMINOPHEN\HYDROCODONE BITARTRATE
  6. SENNA [Concomitant]
     Active Substance: SENNA LEAF\SENNOSIDES\SENNOSIDES A AND B
  7. EFFEXOR [Concomitant]
     Active Substance: VENLAFAXINE HYDROCHLORIDE
  8. ZIAC [Concomitant]
     Active Substance: BISOPROLOL FUMARATE\HYDROCHLOROTHIAZIDE
  9. CYMBALTA [Concomitant]
     Active Substance: DULOXETINE HYDROCHLORIDE
  10. ZANAFLEX [Concomitant]
     Active Substance: TIZANIDINE HYDROCHLORIDE
  11. ASPIRIN. [Concomitant]
     Active Substance: ASPIRIN
  12. NORTHERA [Suspect]
     Active Substance: DROXIDOPA
     Indication: ORTHOSTATIC HYPOTENSION
     Dosage: 1 PILL 3XDAY THEN 2 PILLS 3XDAY THEN 3 PILLS 3XDAY
     Route: 048
     Dates: start: 20150822, end: 20150822
  13. SIMVASTATIN. [Concomitant]
     Active Substance: SIMVASTATIN
  14. MIDODRINE [Concomitant]
     Active Substance: MIDODRINE
  15. TRAZODONE [Concomitant]
     Active Substance: TRAZODONE HYDROCHLORIDE
  16. ESTRACE [Concomitant]
     Active Substance: ESTRADIOL
  17. BLACK COHASH [Concomitant]
  18. BENADRYL [Concomitant]
     Active Substance: DIPHENHYDRAMINE HYDROCHLORIDE
  19. PRILOSEC [Concomitant]
     Active Substance: OMEPRAZOLE MAGNESIUM
  20. PHENOBARBITAL. [Concomitant]
     Active Substance: PHENOBARBITAL

REACTIONS (5)
  - Feeling hot [None]
  - Blood pressure increased [None]
  - Malaise [None]
  - Rash [None]
  - Chest discomfort [None]

NARRATIVE: CASE EVENT DATE: 20150822
